FAERS Safety Report 8343956-7 (Version None)
Quarter: 2012Q2

REPORT INFORMATION
  Report Type: 
  Country: None (occurrence: None)
  Receive Date: 20120504
  Receipt Date: 20120312
  Transmission Date: 20120825
  Serious: Yes (Hospitalization, Other)
  Sender: FDA-Public Use
  Company Number: US-2012-10292

PATIENT
  Age: 79 Year
  Sex: Female

DRUGS (1)
  1. SAMSCA [Suspect]

REACTIONS (1)
  - BLOOD SODIUM DECREASED [None]
